FAERS Safety Report 18899695 (Version 1)
Quarter: 2021Q1

REPORT INFORMATION
  Report Type: Spontaneous
  Country: NO (occurrence: NO)
  Receive Date: 20210216
  Receipt Date: 20210216
  Transmission Date: 20210420
  Serious: Yes (Disabling)
  Sender: FDA-Public Use
  Company Number: NO-TEVA-2021-NO-1879517

PATIENT
  Age: 52 Year
  Sex: Male
  Weight: 90 kg

DRUGS (3)
  1. ESCITALOPRAM ACTAVIS TAB 10 MG [Suspect]
     Active Substance: ESCITALOPRAM OXALATE
     Indication: BURNOUT SYNDROME
  2. LEVAXIN TAB 100 MIKROG [Concomitant]
     Indication: HYPOTHYROIDISM
     Dates: start: 2009
  3. ESCITALOPRAM ACTAVIS TAB 10 MG [Suspect]
     Active Substance: ESCITALOPRAM OXALATE
     Indication: DEPRESSION
     Dates: start: 20180912, end: 20190410

REACTIONS (3)
  - Orgasmic sensation decreased [Not Recovered/Not Resolved]
  - Libido decreased [Not Recovered/Not Resolved]
  - Ejaculation delayed [Not Recovered/Not Resolved]
